FAERS Safety Report 18973647 (Version 1)
Quarter: 2021Q1

REPORT INFORMATION
  Report Type: Report from Study
  Country: FR (occurrence: FR)
  Receive Date: 20210305
  Receipt Date: 20210305
  Transmission Date: 20210420
  Serious: Yes (Hospitalization)
  Sender: FDA-Public Use
  Company Number: FR-PFIZER INC-2021209636

PATIENT
  Age: 77 Year
  Sex: Female
  Weight: 51 kg

DRUGS (1)
  1. TALAZOPARIB. [Suspect]
     Active Substance: TALAZOPARIB
     Indication: BREAST CANCER
     Dosage: 0.75 MG, DAILY
     Route: 048

REACTIONS (1)
  - Pyelonephritis [Not Recovered/Not Resolved]

NARRATIVE: CASE EVENT DATE: 20201002
